FAERS Safety Report 14607165 (Version 1)
Quarter: 2018Q1

REPORT INFORMATION
  Report Type: Spontaneous
  Country: US (occurrence: US)
  Receive Date: 20180306
  Receipt Date: 20180306
  Transmission Date: 20180509
  Serious: No
  Sender: FDA-Public Use
  Company Number: None

PATIENT
  Age: 89 Year
  Sex: Female
  Weight: 61.23 kg

DRUGS (5)
  1. VITAMIN B2 [Concomitant]
     Active Substance: RIBOFLAVIN
  2. VITAMIN D3 [Concomitant]
     Active Substance: CHOLECALCIFEROL
  3. VITAMIN B3 [Concomitant]
     Active Substance: NIACIN
  4. PLAVIX [Suspect]
     Active Substance: CLOPIDOGREL BISULFATE
     Indication: MYOCARDIAL INFARCTION
     Dosage: 90 PILLS ONE A DAY BY MOUTH
     Route: 048
     Dates: start: 20170205, end: 20170210
  5. VITAMIN C [Concomitant]
     Active Substance: ASCORBIC ACID

REACTIONS (3)
  - Mouth swelling [None]
  - Lip swelling [None]
  - Pharyngeal oedema [None]

NARRATIVE: CASE EVENT DATE: 20170203
